FAERS Safety Report 25567707 (Version 2)
Quarter: 2025Q3

REPORT INFORMATION
  Report Type: Spontaneous
  Country: ZA (occurrence: ZA)
  Receive Date: 20250716
  Receipt Date: 20250807
  Transmission Date: 20251020
  Serious: Yes (Death, Other)
  Sender: CSL BEHRING
  Company Number: ZA-ROCHE-10000332698

PATIENT
  Age: 53 Year
  Sex: Female

DRUGS (1)
  1. MIRCERA [Suspect]
     Active Substance: METHOXY POLYETHYLENE GLYCOL-EPOETIN BETA
     Indication: Product used for unknown indication
     Route: 065

REACTIONS (7)
  - Death [Fatal]
  - Cardiac failure [Unknown]
  - Myocardial infarction [Unknown]
  - Respiratory failure [Unknown]
  - Blood urea increased [Unknown]
  - Haemoglobin decreased [Unknown]
  - Mean cell volume increased [Unknown]

NARRATIVE: CASE EVENT DATE: 20250704
